FAERS Safety Report 4735284-3 (Version None)
Quarter: 2005Q3

REPORT INFORMATION
  Report Type: 
  Country: None (occurrence: None)
  Receive Date: 20050803
  Receipt Date: 20050714
  Transmission Date: 20060218
  Serious: Yes (Other)
  Sender: FDA-Public Use
  Company Number: USA0507102813

PATIENT
  Age: 54 Year
  Sex: Female
  Weight: 115 kg

DRUGS (3)
  1. HUMALOG MIX 75/25 [Suspect]
     Indication: DIABETES MELLITUS
     Dosage: 15 U/2 DAY
  2. ACTOS [Concomitant]
  3. LISINOPRIL (LISINOPRIL /00894001/) [Concomitant]

REACTIONS (10)
  - BACK INJURY [None]
  - BLOOD GLUCOSE INCREASED [None]
  - EYE HAEMORRHAGE [None]
  - PAIN OF SKIN [None]
  - PALPITATIONS [None]
  - PHARMACEUTICAL PRODUCT COMPLAINT [None]
  - POST PROCEDURAL COMPLICATION [None]
  - SCAR [None]
  - SKIN TIGHTNESS [None]
  - WEIGHT FLUCTUATION [None]
